FAERS Safety Report 10538589 (Version 3)
Quarter: 2014Q4

REPORT INFORMATION
  Report Type: Spontaneous
  Country: BR (occurrence: BR)
  Receive Date: 20141023
  Receipt Date: 20141223
  Transmission Date: 20150529
  Serious: Yes (Other)
  Sender: FDA-Public Use
  Company Number: BR-PFIZER INC-2014290232

PATIENT
  Age: 53 Year
  Sex: Female
  Weight: 60 kg

DRUGS (9)
  1. LIPITOR [Suspect]
     Active Substance: ATORVASTATIN CALCIUM
     Indication: BLOOD CHOLESTEROL INCREASED
     Dosage: 10 MG, DAILY
     Dates: start: 1998
  2. ZANIDIP [Concomitant]
     Active Substance: LERCANIDIPINE HYDROCHLORIDE
     Dosage: STRENGTH 10 MG
  3. LIPITOR [Suspect]
     Active Substance: ATORVASTATIN CALCIUM
     Indication: PROPHYLAXIS
  4. GLIFAGE XR [Concomitant]
     Active Substance: METFORMIN HYDROCHLORIDE
     Indication: DIABETES MELLITUS
     Dosage: 1000 MG, 1X/DAY (AFTER DINNER STARTED TOGETHER WITH ATORVASTATIN CALCIUM)
  5. BROMAZEPAM [Concomitant]
     Active Substance: BROMAZEPAM
     Dosage: STRENGTH 3 MG
  6. PANTOZOL [Concomitant]
     Active Substance: PANTOPRAZOLE SODIUM
     Indication: ABDOMINAL DISCOMFORT
     Dosage: 1 DF, UNK
     Dates: start: 199802
  7. FLUOXETINE [Concomitant]
     Active Substance: FLUOXETINE\FLUOXETINE HYDROCHLORIDE
     Dosage: UNK
  8. NEBILET [Concomitant]
     Active Substance: NEBIVOLOL
     Dosage: STRENGTH 5 MG
  9. METFORMIN [Concomitant]
     Active Substance: METFORMIN HYDROCHLORIDE
     Dosage: UNK
     Dates: end: 2014

REACTIONS (2)
  - Hiatus hernia [Recovered/Resolved]
  - Gallbladder disorder [Unknown]

NARRATIVE: CASE EVENT DATE: 2005
